FAERS Safety Report 6603705-7 (Version None)
Quarter: 2010Q1

REPORT INFORMATION
  Report Type: 
  Country: None (occurrence: None)
  Receive Date: 20100226
  Receipt Date: 20100216
  Transmission Date: 20100710
  Serious: Yes (Disabling, Other)
  Sender: FDA-Public Use
  Company Number: AU-PFIZER INC-2009316151

PATIENT
  Age: 54 Year
  Sex: Male
  Weight: 69 kg

DRUGS (3)
  1. PROSTIN VR PAEDIATRIC INJECTION [Suspect]
     Indication: ANGIOPATHY
     Dosage: 2UG/ML, 0.25-0.7ML/MIN FOR 1 HR
     Route: 042
     Dates: start: 20090101
  2. SERETIDE [Concomitant]
     Indication: ASTHMA
     Dosage: 250UG/50UG ONE PUFF TWICE DAILY
     Route: 055
  3. VENTOLIN [Concomitant]
     Indication: ASTHMA
     Dosage: ONE TO TWO PUFFS 4XDAY AS NEEDED
     Route: 048

REACTIONS (6)
  - C-REACTIVE PROTEIN INCREASED [None]
  - MYALGIA [None]
  - PAIN [None]
  - PYREXIA [None]
  - RED BLOOD CELL SEDIMENTATION RATE INCREASED [None]
  - SKIN DISCOLOURATION [None]
